FAERS Safety Report 23918769 (Version 1)
Quarter: 2024Q2

REPORT INFORMATION
  Report Type: Spontaneous
  Country: US (occurrence: US)
  Receive Date: 20240530
  Receipt Date: 20240530
  Transmission Date: 20240716
  Serious: Yes (Life-Threatening, Hospitalization, Other)
  Sender: FDA-Public Use
  Company Number: US-MLMSERVICE-20180503-1177655-1

PATIENT

DRUGS (16)
  1. METOPROLOL [Suspect]
     Active Substance: METOPROLOL
     Indication: Prinzmetal angina
     Dosage: 25 MILLIGRAM, TID
     Route: 065
  2. LORAZEPAM [Suspect]
     Active Substance: LORAZEPAM
     Indication: Product used for unknown indication
     Dosage: UNK, PRN
     Route: 065
  3. NIFEDIPINE [Suspect]
     Active Substance: NIFEDIPINE
     Indication: Prinzmetal angina
     Dosage: 90 MILLIGRAM, DAILY
     Route: 065
  4. NIFEDIPINE [Suspect]
     Active Substance: NIFEDIPINE
     Indication: Ventricular fibrillation
  5. NIFEDIPINE [Suspect]
     Active Substance: NIFEDIPINE
     Indication: Ventricular tachycardia
  6. ISOSORBIDE MONONITRATE [Suspect]
     Active Substance: ISOSORBIDE MONONITRATE
     Indication: Prinzmetal angina
     Dosage: 60 MILLIGRAM, DAILY
     Route: 065
  7. FENTANYL [Suspect]
     Active Substance: FENTANYL\FENTANYL CITRATE
     Indication: Sedation
     Dosage: UNK
     Route: 042
  8. PROPOFOL [Suspect]
     Active Substance: PROPOFOL
     Indication: Sedation
     Dosage: UNK
     Route: 042
  9. DIAZEPAM [Suspect]
     Active Substance: DIAZEPAM
     Indication: Product used for unknown indication
     Dosage: 7 MILLIGRAM, TID
     Route: 065
  10. VERAPAMIL [Suspect]
     Active Substance: VERAPAMIL HYDROCHLORIDE
     Indication: Ventricular fibrillation
     Dosage: 240 MILLIGRAM, TID
     Route: 065
  11. VERAPAMIL [Suspect]
     Active Substance: VERAPAMIL HYDROCHLORIDE
     Indication: Ventricular tachycardia
     Dosage: 120 MILLIGRAM, TID
     Route: 065
  12. VERAPAMIL [Suspect]
     Active Substance: VERAPAMIL HYDROCHLORIDE
     Indication: Prinzmetal angina
  13. NITROGLYCERIN [Suspect]
     Active Substance: NITROGLYCERIN
     Indication: Prinzmetal angina
     Dosage: UNK
     Route: 060
  14. NITROGLYCERIN [Suspect]
     Active Substance: NITROGLYCERIN
     Dosage: UNK
     Route: 042
  15. NITROGLYCERIN [Suspect]
     Active Substance: NITROGLYCERIN
     Dosage: 500 MICROGRAM, ONE MINUTE
     Route: 042
  16. MAGNESIUM [Concomitant]
     Active Substance: MAGNESIUM
     Indication: Supplementation therapy
     Dosage: 400 MILLIGRAM, DAILY
     Route: 065

REACTIONS (2)
  - Drug ineffective [Recovered/Resolved]
  - Maternal exposure during pregnancy [Recovered/Resolved]
